FAERS Safety Report 21033012 (Version 1)
Quarter: 2022Q3

REPORT INFORMATION
  Report Type: Other
  Country: None (occurrence: IT)
  Receive Date: 20220701
  Receipt Date: 20220701
  Transmission Date: 20221027
  Serious: Yes (Hospitalization, Other)
  Sender: FDA-Public Use
  Company Number: IT-ACI HealthCare Limited-2130480

PATIENT
  Age: 15 Year
  Sex: Female

DRUGS (4)
  1. TRAMADOL HYDROCHLORIDE [Suspect]
     Active Substance: TRAMADOL HYDROCHLORIDE
     Indication: Abdominal pain
     Route: 065
  2. ALIZAPRIDE [Concomitant]
     Active Substance: ALIZAPRIDE
     Route: 065
  3. ACETAMINOPHEN [Concomitant]
     Active Substance: ACETAMINOPHEN
     Route: 065
  4. KETOROLAC [Concomitant]
     Active Substance: KETOROLAC TROMETHAMINE
     Route: 065

REACTIONS (2)
  - Kounis syndrome [Recovered/Resolved]
  - Stress cardiomyopathy [Recovered/Resolved]
